FAERS Safety Report 10197036 (Version 2)
Quarter: 2014Q2

REPORT INFORMATION
  Report Type: Spontaneous
  Country: CA (occurrence: CA)
  Receive Date: 20140527
  Receipt Date: 20140603
  Transmission Date: 20141212
  Serious: Yes (Other)
  Sender: FDA-Public Use
  Company Number: CA-ACTAVIS-2014-10667

PATIENT
  Age: 11 Year
  Sex: Female
  Weight: 78 kg

DRUGS (3)
  1. TOPIRAMATE [Suspect]
     Indication: CONVULSION
     Dosage: 25 MG, 2 UNITS, BID
     Route: 048
  2. TOPIRAMATE [Suspect]
     Indication: HEADACHE
  3. MELATONIN [Concomitant]
     Indication: SLEEP DISORDER
     Dosage: 5 MG, QHS
     Route: 048
     Dates: start: 20120305

REACTIONS (2)
  - Convulsion [Recovered/Resolved]
  - Drug effect decreased [Recovered/Resolved]
